FAERS Safety Report 18046806 (Version 7)
Quarter: 2020Q4

REPORT INFORMATION
  Report Type: Report from Study
  Country: US (occurrence: US)
  Receive Date: 20200721
  Receipt Date: 20201102
  Transmission Date: 20210113
  Serious: Yes (Death, Hospitalization, Other)
  Sender: FDA-Public Use
  Company Number: US-BRISTOL-MYERS SQUIBB COMPANY-BMS-2020-057365

PATIENT
  Age: 70 Year
  Sex: Male
  Weight: 76.5 kg

DRUGS (1)
  1. NIVOLUMAB [Suspect]
     Active Substance: NIVOLUMAB
     Indication: PLASMA CELL MYELOMA
     Dosage: 480 MILLIGRAM, QMO
     Route: 042
     Dates: start: 20200624, end: 20200624

REACTIONS (3)
  - Sepsis [Fatal]
  - Anaemia [Recovering/Resolving]
  - Pneumonia pseudomonal [Fatal]

NARRATIVE: CASE EVENT DATE: 20200715
